FAERS Safety Report 10276776 (Version 1)
Quarter: 2014Q3

REPORT INFORMATION
  Report Type: Spontaneous
  Country: US (occurrence: None)
  Receive Date: 20140701
  Receipt Date: 20140701
  Transmission Date: 20150326
  Serious: Yes (Death)
  Sender: FDA-Public Use
  Company Number: None

PATIENT
  Age: 51 Year
  Sex: Female
  Weight: 117.03 kg

DRUGS (2)
  1. BOTOX [Suspect]
     Active Substance: ONABOTULINUMTOXINA
     Indication: ANAL FISSURE
     Dosage: INJECTION
  2. BOTOX [Suspect]
     Active Substance: ONABOTULINUMTOXINA
     Indication: HAEMORRHOIDS
     Dosage: INJECTION

REACTIONS (4)
  - Dyspnoea [None]
  - Oxygen saturation decreased [None]
  - Fatigue [None]
  - Congestive cardiomyopathy [None]

NARRATIVE: CASE EVENT DATE: 20131219
